FAERS Safety Report 7588955-8 (Version None)
Quarter: 2011Q3

REPORT INFORMATION
  Report Type: 
  Country: None (occurrence: None)
  Receive Date: 20110705
  Receipt Date: 20110630
  Transmission Date: 20111222
  Serious: Yes (Hospitalization, Other)
  Sender: FDA-Public Use
  Company Number: US-BAYER-2011-057027

PATIENT
  Sex: Female

DRUGS (1)
  1. YAZ [Suspect]
     Dosage: UNK
     Dates: start: 20090522, end: 20090801

REACTIONS (6)
  - EMOTIONAL DISTRESS [None]
  - PULMONARY EMBOLISM [None]
  - PAIN [None]
  - INJURY [None]
  - DEEP VEIN THROMBOSIS [None]
  - ANHEDONIA [None]
